FAERS Safety Report 4416501-6 (Version None)
Quarter: 2004Q2

REPORT INFORMATION
  Report Type: 
  Country: None (occurrence: None)
  Receive Date: 20040630
  Receipt Date: 20040527
  Transmission Date: 20050107
  Serious: Yes (Other)
  Sender: FDA-Public Use
  Company Number: ENTC2004-0100

PATIENT
  Age: 60 Year
  Sex: Female

DRUGS (3)
  1. STALEVO 100 [Suspect]
     Dosage: 50 MG/ 12,5 MG/200 MG, ORAL
     Route: 048
     Dates: start: 20040401
  2. LAMISIL [Concomitant]
  3. PREVACID [Concomitant]

REACTIONS (2)
  - LACRIMATION INCREASED [None]
  - VISION BLURRED [None]
